FAERS Safety Report 16007838 (Version 3)
Quarter: 2023Q1

REPORT INFORMATION
  Report Type: Report from Study
  Country: DE (occurrence: DE)
  Receive Date: 20190226
  Receipt Date: 20230223
  Transmission Date: 20230418
  Serious: No
  Sender: FDA-Public Use
  Company Number: PHHO2019DE001413

PATIENT
  Age: 32 Year
  Sex: Male
  Weight: 85 kg

DRUGS (5)
  1. SECUKINUMAB [Suspect]
     Active Substance: SECUKINUMAB
     Indication: Axial spondyloarthritis
     Dosage: 150 MG LOAD
     Route: 058
     Dates: start: 20161214
  2. SECUKINUMAB [Suspect]
     Active Substance: SECUKINUMAB
     Dosage: 300 MG
     Route: 058
  3. CHOLECALCIFEROL [Concomitant]
     Active Substance: CHOLECALCIFEROL
     Indication: Hypovitaminosis
     Dosage: 20000 IU, QW
     Route: 048
     Dates: start: 20170104
  4. OMEPRAZOLE [Concomitant]
     Active Substance: OMEPRAZOLE
     Indication: Prophylaxis
     Dosage: 40 MG, QD
     Route: 048
     Dates: start: 20161103
  5. NAPROXEN [Concomitant]
     Active Substance: NAPROXEN
     Indication: Pain prophylaxis
     Dosage: 500 MG, QD
     Route: 048
     Dates: start: 20161103

REACTIONS (2)
  - Fatigue [Recovered/Resolved]
  - Physical disability [Recovered/Resolved]

NARRATIVE: CASE EVENT DATE: 20181219
